FAERS Safety Report 9017163 (Version 3)
Quarter: 2013Q3

REPORT INFORMATION
  Report Type: Spontaneous
  Country: US (occurrence: US)
  Receive Date: 20130117
  Receipt Date: 20130705
  Transmission Date: 20140515
  Serious: Yes (Hospitalization)
  Sender: FDA-Public Use
  Company Number: US-BAYER-2013-006031

PATIENT
  Age: 37 Year
  Sex: Female
  Weight: 61.22 kg

DRUGS (6)
  1. YASMIN [Suspect]
     Indication: CONTRACEPTION
     Dosage: UNK
     Dates: start: 200703, end: 200807
  2. YAZ [Suspect]
  3. OCELLA [Suspect]
     Indication: CONTRACEPTION
     Dosage: UNK
     Dates: start: 200807, end: 200909
  4. CLARITIN [Concomitant]
  5. FLONASE [Concomitant]
  6. NIFEDICAL [Concomitant]

REACTIONS (6)
  - Peripheral artery thrombosis [None]
  - Peripheral artery thrombosis [None]
  - Pain [None]
  - Fear of disease [None]
  - Injury [None]
  - Pain [None]
